FAERS Safety Report 21412103 (Version 2)
Quarter: 2022Q4

REPORT INFORMATION
  Report Type: Spontaneous
  Country: ES (occurrence: ES)
  Receive Date: 20221005
  Receipt Date: 20221005
  Transmission Date: 20230113
  Serious: Yes (Hospitalization, Other)
  Sender: FDA-Public Use
  Company Number: ES-ACERUSPHRM-2022-ES-000002

PATIENT
  Sex: Male
  Weight: 1.25 kg

DRUGS (1)
  1. TESTOSTERONE [Suspect]
     Active Substance: TESTOSTERONE
     Dosage: 250 MG/ML EVERY 18 DAYS) FOR 5 YEARS

REACTIONS (2)
  - Foetal growth restriction [Unknown]
  - Umbilical cord vascular disorder [Unknown]
